FAERS Safety Report 8781401 (Version 1)
Quarter: 2012Q4

REPORT INFORMATION
  Report Type: 
  Country: US (occurrence: US)
  Receive Date: 20120913
  Receipt Date: 20120913
  Transmission Date: 20130627
  Serious: No
  Sender: FDA-Public Use
  Company Number: US-VERTEX PHARMACEUTICAL INC.-AE-2012-007767

PATIENT

DRUGS (7)
  1. INCIVEK [Suspect]
     Indication: HEPATITIS C
     Route: 048
     Dates: start: 20120328
  2. RIBAVIRIN [Concomitant]
     Indication: HEPATITIS C
     Dates: start: 20120328
  3. PEGASYS [Concomitant]
     Indication: HEPATITIS C
     Dates: start: 20120328
  4. UNSPECIFIED LIVER MEDICATIONS [Concomitant]
  5. IBUPROFEN [Concomitant]
     Indication: PAIN
  6. UNSPECIFIED HIGH BLOOD PRESSURE PILLS [Concomitant]
     Indication: HYPERTENSION
  7. MULTIVITAMIN [Concomitant]

REACTIONS (1)
  - Cholestatic pruritus [Not Recovered/Not Resolved]
